FAERS Safety Report 24331086 (Version 1)
Quarter: 2024Q3

REPORT INFORMATION
  Report Type: Spontaneous
  Country: US (occurrence: None)
  Receive Date: 20240918
  Receipt Date: 20240918
  Transmission Date: 20241017
  Serious: No
  Sender: ASTRAZENECA
  Company Number: 2024A211771

PATIENT

DRUGS (1)
  1. SEROQUEL [Suspect]
     Active Substance: QUETIAPINE FUMARATE
     Route: 048

REACTIONS (7)
  - Nervousness [Unknown]
  - Ataxia [Unknown]
  - Somnolence [Unknown]
  - Euphoric mood [Unknown]
  - Feeling jittery [Unknown]
  - Road traffic accident [Unknown]
  - Feeling abnormal [Unknown]
